FAERS Safety Report 8042483-4 (Version None)
Quarter: 2011Q4

REPORT INFORMATION
  Report Type: 
  Country: None (occurrence: None)
  Receive Date: 20111209
  Receipt Date: 20111110
  Transmission Date: 20120403
  Serious: Yes (Hospitalization)
  Sender: FDA-Public Use
  Company Number: 2011SP049619

PATIENT
  Age: 55 Year
  Sex: Female
  Weight: 79.38 kg

DRUGS (15)
  1. VICTRELIS [Suspect]
     Indication: PRODUCT USED FOR UNKNOWN INDICATION
     Dosage: 800 MG;TID;PO
     Route: 048
     Dates: start: 20110817
  2. XANAX [Concomitant]
  3. SUCRALFATE [Concomitant]
  4. RANITIDINE [Concomitant]
  5. VERAPAMIL [Concomitant]
  6. PAXIL [Concomitant]
  7. POTASSIUM CHLORIDE [Concomitant]
  8. METFORMIN HCL [Concomitant]
  9. RIBAVIRIN [Suspect]
     Indication: PRODUCT USED FOR UNKNOWN INDICATION
     Dosage: 200 MG;PO
     Route: 048
     Dates: start: 20110817
  10. PEG-INTRON [Suspect]
     Indication: PRODUCT USED FOR UNKNOWN INDICATION
     Dosage: 120 MCG;SC
     Route: 058
     Dates: start: 20110817
  11. DIOVAN [Concomitant]
  12. DOCUSATE SODIUM [Concomitant]
  13. FERROUS SULFATE TAB [Concomitant]
  14. OXYCONTIN [Concomitant]
  15. PROCRIT [Concomitant]

REACTIONS (3)
  - FATIGUE [None]
  - DYSGEUSIA [None]
  - ANAEMIA [None]
